FAERS Safety Report 9708821 (Version 28)
Quarter: 2016Q1

REPORT INFORMATION
  Report Type: Report from Study
  Country: CA (occurrence: CA)
  Receive Date: 20131125
  Receipt Date: 20160303
  Transmission Date: 20160526
  Serious: Yes (Hospitalization)
  Sender: FDA-Public Use
  Company Number: CA-INCYTE CORPORATION-2013IN000427

PATIENT
  Age: 56 Year
  Sex: Female

DRUGS (31)
  1. JAKAFI [Suspect]
     Active Substance: RUXOLITINIB
     Indication: MYELOFIBROSIS
     Dosage: 10 MG, BID
     Route: 048
     Dates: start: 20130210
  2. JAKAFI [Interacting]
     Active Substance: RUXOLITINIB
     Dosage: 10 MG, BID
     Route: 048
  3. VITAMIN B6 [Concomitant]
     Active Substance: PYRIDOXINE HYDROCHLORIDE
     Indication: PRODUCT USED FOR UNKNOWN INDICATION
     Dosage: UNK
     Route: 065
  4. JAKAFI [Interacting]
     Active Substance: RUXOLITINIB
     Dosage: 15 MG, BID
     Route: 048
     Dates: start: 201305
  5. JAKAFI [Interacting]
     Active Substance: RUXOLITINIB
     Dosage: 5 MG, BID
     Route: 048
  6. JAKAFI [Interacting]
     Active Substance: RUXOLITINIB
     Dosage: 30 MG, QD
     Route: 048
  7. JAKAFI [Interacting]
     Active Substance: RUXOLITINIB
     Dosage: 10 MG, BID
     Route: 048
  8. DIOVAN [Concomitant]
     Active Substance: VALSARTAN
     Indication: PRODUCT USED FOR UNKNOWN INDICATION
     Dosage: UNK
     Route: 065
  9. JAKAFI [Interacting]
     Active Substance: RUXOLITINIB
     Dosage: 20 MG, BID
     Route: 048
     Dates: start: 201302, end: 201305
  10. JAKAFI [Interacting]
     Active Substance: RUXOLITINIB
     Dosage: 20 MG, BID
     Route: 048
  11. JAKAFI [Interacting]
     Active Substance: RUXOLITINIB
     Dosage: 10 MG, BID
     Route: 048
     Dates: start: 20140115
  12. JAKAFI [Interacting]
     Active Substance: RUXOLITINIB
     Dosage: 20 MG, QD
     Route: 048
  13. JAKAFI [Interacting]
     Active Substance: RUXOLITINIB
     Dosage: 10 MG, BID
     Route: 048
  14. VALSARTAN HCT [Concomitant]
     Active Substance: HYDROCHLOROTHIAZIDE\VALSARTAN
     Indication: PRODUCT USED FOR UNKNOWN INDICATION
     Dosage: UNK
     Route: 065
  15. JAKAFI [Interacting]
     Active Substance: RUXOLITINIB
     Dosage: 10 MG, BID
     Route: 048
  16. ISONIAZID. [Interacting]
     Active Substance: ISONIAZID
     Indication: PRODUCT USED FOR UNKNOWN INDICATION
     Dosage: 300 MG, QD
     Route: 065
     Dates: end: 201404
  17. VITAMIN B6 [Concomitant]
     Active Substance: PYRIDOXINE HYDROCHLORIDE
     Dosage: QD
  18. JAKAFI [Interacting]
     Active Substance: RUXOLITINIB
     Dosage: 30 MG, QD
     Route: 048
  19. JAKAFI [Interacting]
     Active Substance: RUXOLITINIB
     Dosage: 10 MG, BID
     Route: 048
  20. JAKAFI [Interacting]
     Active Substance: RUXOLITINIB
     Dosage: 20 MG, QD
     Route: 048
  21. VALSARTAN HCT [Concomitant]
     Active Substance: HYDROCHLOROTHIAZIDE\VALSARTAN
     Dosage: 160MG/12.5MG
  22. AMLODIPINE [Concomitant]
     Active Substance: AMLODIPINE BESYLATE
     Indication: PRODUCT USED FOR UNKNOWN INDICATION
     Dosage: UNK
  23. AMLODIPINE [Concomitant]
     Active Substance: AMLODIPINE BESYLATE
     Route: 065
  24. JAKAFI [Interacting]
     Active Substance: RUXOLITINIB
     Dosage: 20 MG, BID
     Route: 048
  25. JAKAFI [Interacting]
     Active Substance: RUXOLITINIB
     Dosage: 15 MG, BID
     Route: 048
     Dates: start: 201412
  26. JAKAFI [Interacting]
     Active Substance: RUXOLITINIB
     Dosage: 10 MG, BID
     Route: 048
  27. VITAMIN D [Concomitant]
     Active Substance: CHOLECALCIFEROL
     Indication: TUBERCULOSIS GASTROINTESTINAL
     Dosage: UNK
     Route: 065
  28. JAKAFI [Interacting]
     Active Substance: RUXOLITINIB
     Dosage: 20 MG, BID
     Route: 048
  29. ISONIAZID. [Interacting]
     Active Substance: ISONIAZID
     Dosage: 300MG, QD
     Dates: end: 201404
  30. RIFAMPIN. [Interacting]
     Active Substance: RIFAMPIN
     Indication: TUBERCULOSIS GASTROINTESTINAL
     Dosage: 300 MG, QD
     Route: 065
     Dates: start: 201310, end: 201404
  31. PERCOCET [Concomitant]
     Active Substance: ACETAMINOPHEN\OXYCODONE HYDROCHLORIDE
     Indication: PRODUCT USED FOR UNKNOWN INDICATION
     Dosage: UNK
     Route: 065

REACTIONS (53)
  - Hypoaesthesia [Not Recovered/Not Resolved]
  - Pruritus [Not Recovered/Not Resolved]
  - Nasopharyngitis [Unknown]
  - Anxiety [Unknown]
  - Pain [Unknown]
  - Headache [Unknown]
  - Irritability [Unknown]
  - Grip strength decreased [Not Recovered/Not Resolved]
  - Nerve injury [Unknown]
  - Arthralgia [Unknown]
  - Asthenia [Unknown]
  - Haemoglobin decreased [Recovering/Resolving]
  - Insomnia [Unknown]
  - Crying [Unknown]
  - Abdominal distension [Not Recovered/Not Resolved]
  - Gastrointestinal sounds abnormal [Unknown]
  - Abdominal infection [Unknown]
  - Abdominal discomfort [Unknown]
  - Abdominal pain [Unknown]
  - Drug interaction [Unknown]
  - Joint lock [Unknown]
  - Chest pain [Unknown]
  - Trigger finger [Unknown]
  - Finger deformity [Unknown]
  - Hyperphagia [Unknown]
  - Flatulence [Unknown]
  - Weight increased [Unknown]
  - Fatigue [Not Recovered/Not Resolved]
  - Spleen disorder [Unknown]
  - Oropharyngeal pain [Unknown]
  - Night sweats [Recovering/Resolving]
  - Dyspepsia [Unknown]
  - Feeling hot [Unknown]
  - Contusion [Recovering/Resolving]
  - Pain in extremity [Not Recovered/Not Resolved]
  - Musculoskeletal stiffness [Unknown]
  - Bone pain [Unknown]
  - Cough [Unknown]
  - Cardiac stress test abnormal [Unknown]
  - Appetite disorder [Unknown]
  - Blood pressure fluctuation [Unknown]
  - Dizziness [Unknown]
  - Blood pressure increased [Unknown]
  - Tuberculosis gastrointestinal [Recovered/Resolved]
  - Immune system disorder [Unknown]
  - Nausea [Not Recovered/Not Resolved]
  - Haemoglobin abnormal [Not Recovered/Not Resolved]
  - Gait disturbance [Unknown]
  - Somnolence [Unknown]
  - Muscle spasms [Unknown]
  - Hypersensitivity [Unknown]
  - Blood glucose increased [Unknown]
  - Platelet count decreased [Recovering/Resolving]

NARRATIVE: CASE EVENT DATE: 201305
